FAERS Safety Report 21302754 (Version 1)
Quarter: 2022Q3

REPORT INFORMATION
  Report Type: Spontaneous
  Country: CN (occurrence: CN)
  Receive Date: 20220907
  Receipt Date: 20220907
  Transmission Date: 20221027
  Serious: Yes (Hospitalization, Other)
  Sender: FDA-Public Use
  Company Number: None

PATIENT
  Age: 37 Year
  Sex: Female
  Weight: 60 kg

DRUGS (8)
  1. CYCLOPHOSPHAMIDE [Suspect]
     Active Substance: CYCLOPHOSPHAMIDE
     Indication: Breast cancer female
     Dosage: 960 MG, QD, DILUTED WITH DRUG VEHICLE NS
     Route: 041
     Dates: start: 20220819, end: 20220819
  2. SODIUM CHLORIDE [Suspect]
     Active Substance: SODIUM CHLORIDE
     Indication: Vehicle solution use
     Dosage: 100 ML, QD, DILUTED WITH CYCLOPHOSPHAMIDE
     Route: 041
     Dates: start: 20220819, end: 20220819
  3. DOXORUBICIN HYDROCHLORIDE [Suspect]
     Active Substance: DOXORUBICIN HYDROCHLORIDE
     Indication: Breast cancer female
     Dosage: 96 MG, QD, DILUTED WITH STERILE WATER FOR INJECTION
     Route: 041
     Dates: start: 20220819, end: 20220819
  4. STERILE WATER [Suspect]
     Active Substance: WATER
     Indication: Vehicle solution use
     Dosage: 48 ML, QD, DILUTED IN DOXORUBICIN
     Route: 041
     Dates: start: 20220819, end: 20220819
  5. DEXAMETHASONE SODIUM PHOSPHATE [Concomitant]
     Active Substance: DEXAMETHASONE SODIUM PHOSPHATE
     Indication: Prophylaxis of nausea and vomiting
     Dosage: 10 MG, ONCE DAILY,
     Route: 041
     Dates: start: 20220819, end: 20220819
  6. PALONOSETRON HYDROCHLORIDE [Concomitant]
     Active Substance: PALONOSETRON HYDROCHLORIDE
     Indication: Prophylaxis of nausea and vomiting
     Dosage: 0.25 MG, ONCE DAILY,
     Route: 041
     Dates: start: 20220819, end: 20220819
  7. APREPITANT [Concomitant]
     Active Substance: APREPITANT
     Indication: Prophylaxis of nausea and vomiting
     Dosage: 125 MG, QD
     Route: 048
     Dates: start: 20220819, end: 20220819
  8. APREPITANT [Concomitant]
     Active Substance: APREPITANT
     Dosage: 80 MG, ONCE DAILY
     Route: 048
     Dates: start: 20220820, end: 20220821

REACTIONS (11)
  - Photophobia [Recovering/Resolving]
  - Syncope [Recovered/Resolved]
  - Chest discomfort [Recovering/Resolving]
  - Dizziness [Recovering/Resolving]
  - Asthenia [Recovering/Resolving]
  - Nausea [Recovering/Resolving]
  - Vomiting [Recovering/Resolving]
  - Abdominal pain [Recovering/Resolving]
  - Palpitations [Recovering/Resolving]
  - Hyperhidrosis [Recovering/Resolving]
  - Gastrooesophageal reflux disease [Unknown]

NARRATIVE: CASE EVENT DATE: 20220819
